FAERS Safety Report 8272292-2 (Version None)
Quarter: 2012Q2

REPORT INFORMATION
  Report Type: 
  Country: None (occurrence: None)
  Receive Date: 20120410
  Receipt Date: 20120326
  Transmission Date: 20120825
  Serious: Yes (Hospitalization)
  Sender: FDA-Public Use
  Company Number: US-WATSON-2012-05478

PATIENT
  Age: 25 Year
  Sex: Female

DRUGS (5)
  1. OXYCODONE HCL [Suspect]
     Dosage: 10 MG, BID, + 5-10 MG Q4H AS NEEDED
     Route: 065
  2. BUSPIRONE HYDROCHLORIDE [Suspect]
     Indication: ANXIETY
     Dosage: UNK UNK, UNK
     Route: 065
  3. SODIUM OXYBATE [Suspect]
     Indication: NARCOLEPSY
     Dosage: 9 G, DAILY
     Route: 065
  4. DIAZEPAM [Suspect]
     Indication: MUSCLE SPASMS
     Dosage: 2 MG, TID AS NEEDED
     Route: 065
  5. LORAZEPAM [Suspect]
     Indication: DRUG WITHDRAWAL SYNDROME
     Dosage: 1 MG, SINGLE
     Route: 048

REACTIONS (2)
  - PSYCHOTIC DISORDER [None]
  - MENTAL STATUS CHANGES [None]
